FAERS Safety Report 8595304-5 (Version None)
Quarter: 2012Q3

REPORT INFORMATION
  Report Type: 
  Country: None (occurrence: None)
  Receive Date: 20120807
  Receipt Date: 20120807
  Transmission Date: 20120928
  Serious: Yes (Disabling)
  Sender: FDA-Public Use
  Company Number: None

PATIENT
  Sex: Female
  Weight: 56.8 kg

DRUGS (1)
  1. CIPROFLOXACIN HCL [Suspect]
     Indication: CYSTITIS
     Dosage: 500 MG 2X/DAY FOR 5 DAYS ORAL
     Route: 048
     Dates: start: 20120505, end: 20120506

REACTIONS (9)
  - INSOMNIA [None]
  - ARTHRALGIA [None]
  - EXERCISE TOLERANCE DECREASED [None]
  - TENDON PAIN [None]
  - RESTLESSNESS [None]
  - PAIN IN EXTREMITY [None]
  - GINGIVITIS [None]
  - HEADACHE [None]
  - FATIGUE [None]
